FAERS Safety Report 11832891 (Version 2)
Quarter: 2018Q1

REPORT INFORMATION
  Report Type: Spontaneous
  Country: CL (occurrence: CL)
  Receive Date: 20151214
  Receipt Date: 20180216
  Transmission Date: 20180508
  Serious: Yes (Other)
  Sender: FDA-Public Use
  Company Number: CL-JNJFOC-20151204499

PATIENT

DRUGS (3)
  1. AZATHIOPRINE. [Suspect]
     Active Substance: AZATHIOPRINE
     Indication: PRODUCT USED FOR UNKNOWN INDICATION
     Dosage: 2.0 TO 2.5 MG/KG
     Route: 065
  2. REMICADE [Suspect]
     Active Substance: INFLIXIMAB
     Indication: COLITIS ULCERATIVE
     Dosage: ON DAY 14 AND 42
     Route: 042
  3. REMICADE [Suspect]
     Active Substance: INFLIXIMAB
     Indication: COLITIS ULCERATIVE
     Dosage: ON DAYS 0, 14 AND 42
     Route: 042

REACTIONS (10)
  - Embolism venous [Unknown]
  - Pyrexia [Unknown]
  - Colitis ulcerative [Unknown]
  - Colectomy [Unknown]
  - Liver disorder [Unknown]
  - Drug ineffective [Unknown]
  - Cytomegalovirus colitis [Unknown]
  - Anal abscess [Unknown]
  - Osteoarthritis [Unknown]
  - Urinary tract infection [Unknown]
